FAERS Safety Report 5318326-6 (Version None)
Quarter: 2007Q2

REPORT INFORMATION
  Report Type: 
  Country: None (occurrence: None)
  Receive Date: 20070507
  Receipt Date: 20070427
  Transmission Date: 20071010
  Serious: Yes (Hospitalization)
  Sender: FDA-Public Use
  Company Number: CH-PFIZER INC-2007034598

PATIENT
  Age: 41 Year
  Sex: Female

DRUGS (9)
  1. IRINOTECAN HCL [Suspect]
     Indication: COLON CANCER
     Route: 042
     Dates: start: 20060426, end: 20070206
  2. AVASTIN [Suspect]
     Indication: COLON CANCER
     Route: 042
     Dates: start: 20060726, end: 20070206
  3. NEXIUM [Suspect]
     Indication: GASTRITIS
     Route: 048
     Dates: start: 20070209, end: 20070227
  4. IRFEN [Suspect]
     Indication: ABDOMINAL PAIN UPPER
     Route: 048
     Dates: start: 20061225, end: 20070114
  5. FLUOROURACIL [Suspect]
     Indication: COLON CANCER
     Route: 042
     Dates: start: 20060426, end: 20070206
  6. DAFALGAN [Concomitant]
     Route: 048
     Dates: start: 20070101, end: 20070101
  7. PANTOZOL [Concomitant]
     Route: 048
     Dates: start: 20070217, end: 20070219
  8. ANXIOLIT [Concomitant]
     Route: 048
     Dates: start: 20070217, end: 20070219
  9. SIRDALUD [Concomitant]
     Route: 048
     Dates: start: 20070201, end: 20070201

REACTIONS (1)
  - PANCREATITIS ACUTE [None]
